FAERS Safety Report 20064507 (Version 1)
Quarter: 2021Q4

REPORT INFORMATION
  Report Type: Report from Study
  Country: NL (occurrence: NL)
  Receive Date: 20211112
  Receipt Date: 20211112
  Transmission Date: 20220303
  Serious: Yes (Death)
  Sender: FDA-Public Use
  Company Number: NL-NOVARTISPH-NVSC2021NL258808

PATIENT

DRUGS (1)
  1. CAPMATINIB [Suspect]
     Active Substance: CAPMATINIB
     Indication: Product used for unknown indication
     Dosage: UNK
     Route: 065
     Dates: start: 20210331, end: 20210626

REACTIONS (3)
  - Death [Fatal]
  - Oedema peripheral [Unknown]
  - Therapy non-responder [Unknown]

NARRATIVE: CASE EVENT DATE: 20210725
